FAERS Safety Report 8836733 (Version 1)
Quarter: 2012Q4

REPORT INFORMATION
  Report Type: 
  Country: US (occurrence: US)
  Receive Date: 20121012
  Receipt Date: 20121012
  Transmission Date: 20130627
  Serious: No
  Sender: FDA-Public Use
  Company Number: US-009507513-1108USA01559

PATIENT
  Sex: Male

DRUGS (1)
  1. SINEMET [Suspect]
     Dosage: 25-100
     Route: 048

REACTIONS (9)
  - Gastric disorder [Unknown]
  - Oral pain [Not Recovered/Not Resolved]
  - Cataract [Unknown]
  - Glossodynia [Not Recovered/Not Resolved]
  - Pharyngeal ulceration [Not Recovered/Not Resolved]
  - Dysphagia [Not Recovered/Not Resolved]
  - Plicated tongue [Not Recovered/Not Resolved]
  - Sweat gland disorder [Not Recovered/Not Resolved]
  - Constipation [Not Recovered/Not Resolved]
